FAERS Safety Report 17927895 (Version 1)
Quarter: 2020Q2

REPORT INFORMATION
  Report Type: Spontaneous
  Country: GB (occurrence: GB)
  Receive Date: 20200623
  Receipt Date: 20200623
  Transmission Date: 20200714
  Serious: Yes (Hospitalization)
  Sender: FDA-Public Use
  Company Number: GB-TEVA-2020-GB-1789258

PATIENT
  Age: 72 Year
  Sex: Female

DRUGS (14)
  1. PARACETAMOL [Concomitant]
     Active Substance: ACETAMINOPHEN
  2. LATANOPROST. [Concomitant]
     Active Substance: LATANOPROST
  3. SIMVASTATIN. [Concomitant]
     Active Substance: SIMVASTATIN
  4. LEVEMIR [Concomitant]
     Active Substance: INSULIN DETEMIR
  5. ESTRIOL [Concomitant]
     Active Substance: ESTRIOL
  6. BISOPROLOL [Concomitant]
     Active Substance: BISOPROLOL
  7. NYSTAN [Concomitant]
     Active Substance: NYSTATIN
  8. BENZYDAMINE [Concomitant]
     Active Substance: BENZYDAMINE
  9. CANDESARTAN. [Concomitant]
     Active Substance: CANDESARTAN
  10. NOVORAPID [Concomitant]
     Active Substance: INSULIN ASPART
  11. COSOPT [Concomitant]
     Active Substance: DORZOLAMIDE HYDROCHLORIDE\TIMOLOL MALEATE
  12. DABIGATRAN [Concomitant]
     Active Substance: DABIGATRAN
  13. CO-AMOXICLAV [Suspect]
     Active Substance: AMOXICILLIN\CLAVULANATE POTASSIUM
     Route: 065
  14. DOXAZOSIN [Concomitant]
     Active Substance: DOXAZOSIN MESYLATE

REACTIONS (1)
  - Heart rate increased [Recovered/Resolved]
